FAERS Safety Report 13026785 (Version 1)
Quarter: 2016Q4

REPORT INFORMATION
  Report Type: Spontaneous
  Country: US (occurrence: US)
  Receive Date: 20161213
  Receipt Date: 20161213
  Transmission Date: 20170207
  Serious: Yes (Hospitalization, Disabling, Other)
  Sender: FDA-Public Use
  Company Number: None

PATIENT
  Age: 31 Year
  Sex: Female
  Weight: 85.5 kg

DRUGS (1)
  1. LUPRON [Suspect]
     Active Substance: LEUPROLIDE ACETATE
     Indication: ENDOMETRIOSIS
     Dates: start: 20161114, end: 20161212

REACTIONS (6)
  - Bone loss [None]
  - Pain [None]
  - Activities of daily living impaired [None]
  - Constipation [None]
  - Abdominal pain upper [None]
  - Amnesia [None]

NARRATIVE: CASE EVENT DATE: 20161129
